FAERS Safety Report 16405301 (Version 4)
Quarter: 2019Q3

REPORT INFORMATION
  Report Type: Report from Study
  Country: US (occurrence: US)
  Receive Date: 20190607
  Receipt Date: 20190918
  Transmission Date: 20191004
  Serious: Yes (Hospitalization)
  Sender: FDA-Public Use
  Company Number: US-ACTELION-A-NJ2017-153568

PATIENT
  Age: 38 Year
  Sex: Female
  Weight: 83.45 kg

DRUGS (6)
  1. VELETRI [Suspect]
     Active Substance: EPOPROSTENOL
     Dosage: 14 NG/KG, PER MIN
     Route: 042
     Dates: start: 2017
  2. VELETRI [Suspect]
     Active Substance: EPOPROSTENOL
     Dosage: 16 NG/KG, PER MIN
     Route: 042
  3. VELETRI [Suspect]
     Active Substance: EPOPROSTENOL
     Dosage: 25 NG/KG, PER MIN
     Route: 042
  4. VELETRI [Suspect]
     Active Substance: EPOPROSTENOL
     Dosage: 27 NG/KG, PER MIN
     Route: 042
  5. VELETRI [Suspect]
     Active Substance: EPOPROSTENOL
     Indication: PULMONARY HYPERTENSION
     Dosage: 25 NG/KG, PER MIN
     Route: 042
  6. SILDENAFIL CITRATE. [Concomitant]
     Active Substance: SILDENAFIL CITRATE

REACTIONS (15)
  - Hospitalisation [Unknown]
  - Dizziness [Unknown]
  - Dyspnoea exertional [Not Recovered/Not Resolved]
  - Device related infection [Unknown]
  - Device dislocation [Unknown]
  - Catheter site erythema [Unknown]
  - Catheter site rash [Unknown]
  - Catheter site discharge [Unknown]
  - Hypoaesthesia oral [Unknown]
  - Device occlusion [Unknown]
  - Septic shock [Unknown]
  - Headache [Unknown]
  - Pericardial effusion [Unknown]
  - Palpitations [Unknown]
  - Catheter site pain [Unknown]

NARRATIVE: CASE EVENT DATE: 20190526
